FAERS Safety Report 5959269-4 (Version None)
Quarter: 2008Q4

REPORT INFORMATION
  Report Type: 
  Country: None (occurrence: None)
  Receive Date: 20081120
  Receipt Date: 20081111
  Transmission Date: 20090506
  Serious: Yes (Other)
  Sender: FDA-Public Use
  Company Number: US-SOLVAY-00208004631

PATIENT
  Age: 69 Year
  Sex: Male

DRUGS (3)
  1. ANDROGEL [Suspect]
     Indication: DRUG USE FOR UNKNOWN INDICATION
     Dosage: DAILY DOSE: 5 GRAM(S)
     Route: 062
  2. ANDROGEL [Suspect]
     Dosage: DAILY DOSE: 10 GRAM(S)
     Route: 062
  3. ANDROGEL [Suspect]
     Dosage: DAILY DOSE: 7.5 GRAM(S)
     Route: 062

REACTIONS (1)
  - SKIN CANCER [None]
